FAERS Safety Report 7153670-1 (Version None)
Quarter: 2010Q4

REPORT INFORMATION
  Report Type: 
  Country: None (occurrence: None)
  Receive Date: 20101130
  Receipt Date: 20101118
  Transmission Date: 20110411
  Serious: Yes (Death, Hospitalization, Other)
  Sender: FDA-Public Use
  Company Number: AXC-2010-000325

PATIENT
  Age: 72 Year
  Sex: Male

DRUGS (4)
  1. MESALAMINE [Suspect]
     Indication: COLITIS ULCERATIVE
     Dosage: TOPICAL
     Route: 061
  2. MESALAMINE [Suspect]
     Indication: COLITIS ULCERATIVE
     Dosage: ORAL
     Route: 048
  3. CORTICOSTEROIDS () UNKNOWN [Suspect]
     Indication: COLITIS ULCERATIVE
     Dosage: INTRAVENOUS
     Route: 042
  4. TACROLIMUS [Suspect]
     Indication: COLITIS ULCERATIVE
     Dosage: 0.01 MG/KG
     Dates: start: 20090101, end: 20090101

REACTIONS (9)
  - ABDOMINAL PAIN [None]
  - HAEMATOCHEZIA [None]
  - LUNG INFILTRATION [None]
  - MULTI-ORGAN FAILURE [None]
  - NO THERAPEUTIC RESPONSE [None]
  - OPPORTUNISTIC INFECTION [None]
  - PNEUMOCYSTIS JIROVECI PNEUMONIA [None]
  - PULMONARY EMBOLISM [None]
  - RESPIRATORY FAILURE [None]
